FAERS Safety Report 6608814-4 (Version None)
Quarter: 2010Q1

REPORT INFORMATION
  Report Type: 
  Country: None (occurrence: None)
  Receive Date: 20100301
  Receipt Date: 20100222
  Transmission Date: 20100710
  Serious: Yes (Hospitalization, Other)
  Sender: FDA-Public Use
  Company Number: PHHO2010DE02916

PATIENT
  Sex: Male
  Weight: 72.1 kg

DRUGS (4)
  1. AFINITOR [Suspect]
     Indication: NEUROENDOCRINE TUMOUR
     Dosage: 10 MG
     Route: 048
     Dates: start: 20091222
  2. TORASEMIDE [Suspect]
     Indication: OEDEMA
     Dosage: 15 MG
     Route: 048
     Dates: start: 20100115, end: 20100129
  3. TORASEMIDE [Suspect]
     Dosage: 10 MG
     Route: 048
     Dates: start: 20100130, end: 20100207
  4. TORASEMIDE [Suspect]
     Dosage: 5 MG
     Route: 048
     Dates: start: 20100208

REACTIONS (5)
  - DERMATITIS [None]
  - DIARRHOEA [None]
  - OEDEMA [None]
  - OVERDOSE [None]
  - RENAL FAILURE ACUTE [None]
